FAERS Safety Report 10086512 (Version 2)
Quarter: 2014Q2

REPORT INFORMATION
  Report Type: Spontaneous
  Country: US (occurrence: US)
  Receive Date: 20140418
  Receipt Date: 20140523
  Transmission Date: 20141212
  Serious: No
  Sender: FDA-Public Use
  Company Number: US-PFIZER INC-2014106401

PATIENT
  Age: 55 Year
  Sex: Male
  Weight: 133.79 kg

DRUGS (7)
  1. LYRICA [Suspect]
     Indication: DIABETIC NEUROPATHY
     Dosage: 75 MG, 2X/DAY
     Route: 048
     Dates: start: 201403, end: 201403
  2. LYRICA [Suspect]
     Dosage: 150 MG, 2X/DAY
     Route: 048
     Dates: start: 20140412
  3. GABAPENTIN [Suspect]
     Indication: DIABETIC NEUROPATHY
     Dosage: 2100 MG, 1X/DAY (2 ORAL CAPSULES OF 300MG IN MORNING + IN AFTERNOON + 3 CAPSULE AT BEDTIME)
     Route: 048
     Dates: end: 201403
  4. GABAPENTIN [Suspect]
     Dosage: 2100 MG, 1X/DAY (2 ORAL CAPSULES OF 300MG IN THE MORNING + IN AFTERNOON AND 3 CAPSULE AT BED TIME)
     Dates: start: 201403, end: 20140412
  5. ATENOLOL [Concomitant]
     Indication: HYPERTENSION
     Dosage: 100 MG, 1X/DAY
  6. METFORMIN [Concomitant]
     Indication: DIABETES MELLITUS
     Dosage: 1000 MG, 2X/DAY
  7. INSULIN [Concomitant]
     Indication: DIABETES MELLITUS
     Dosage: UNK

REACTIONS (3)
  - Drug effect incomplete [Unknown]
  - Blood testosterone decreased [Unknown]
  - Glycosylated haemoglobin increased [Unknown]
